FAERS Safety Report 17807457 (Version 1)
Quarter: 2020Q2

REPORT INFORMATION
  Report Type: Spontaneous
  Country: FR (occurrence: FR)
  Receive Date: 20200520
  Receipt Date: 20200520
  Transmission Date: 20200714
  Serious: Yes (Hospitalization)
  Sender: FDA-Public Use
  Company Number: FR-TEVA-2020-FR-1236503

PATIENT
  Age: 73 Year
  Sex: Female

DRUGS (15)
  1. OFLOCET 200 MG, COMPRIME PELLICULE SECABLE [Interacting]
     Active Substance: OFLOXACIN
     Indication: ARTHRITIS BACTERIAL
     Dosage: 3 DOSAGE FORMS
     Route: 048
     Dates: start: 20200322, end: 20200414
  2. PANTOPRAZOLE [Concomitant]
     Active Substance: PANTOPRAZOLE
  3. LEVOTHYROX 125 MICROGRAMMES, COMPRIME SECABLE [Concomitant]
     Active Substance: LEVOTHYROXINE SODIUM
  4. ACIDE FOLIQUE [Concomitant]
     Active Substance: FOLIC ACID
  5. BACTRIM [Interacting]
     Active Substance: SULFAMETHOXAZOLE\TRIMETHOPRIM
     Indication: ARTHRITIS BACTERIAL
     Dosage: 2 DOSAGE FORMS
     Route: 048
     Dates: start: 20200309
  6. DOLIPRANE [Concomitant]
     Active Substance: ACETAMINOPHEN
  7. LOVENOX [Concomitant]
     Active Substance: ENOXAPARIN SODIUM
  8. MAG 2 [Concomitant]
     Active Substance: MAGNESIUM
  9. MACROGOL 4000 [Concomitant]
     Active Substance: POLYETHYLENE GLYCOL 4000
  10. BICARBONATE DE SODIUM [Concomitant]
     Active Substance: SODIUM BICARBONATE
  11. PRIMPERAN [Concomitant]
     Active Substance: METOCLOPRAMIDE HYDROCHLORIDE
  12. SOLUPRED [Concomitant]
  13. ACTISKENAN 5 MG, GELULE [Concomitant]
     Active Substance: MORPHINE SULFATE
  14. FUNGIZONE [Concomitant]
     Active Substance: AMPHOTERICIN B
  15. FLUCONAZOLE. [Suspect]
     Active Substance: FLUCONAZOLE
     Indication: OROPHARYNGEAL CANDIDIASIS
     Dosage: 100 MG
     Route: 048
     Dates: end: 20200414

REACTIONS (2)
  - Epilepsy [Recovered/Resolved]
  - Drug interaction [Unknown]

NARRATIVE: CASE EVENT DATE: 20200414
